FAERS Safety Report 25243442 (Version 1)
Quarter: 2025Q2

REPORT INFORMATION
  Report Type: Spontaneous
  Country: RU (occurrence: RU)
  Receive Date: 20250428
  Receipt Date: 20250428
  Transmission Date: 20250717
  Serious: Yes (Other)
  Sender: EXELIXIS
  Company Number: RU-IPSEN Group, Research and Development-2025-09187

PATIENT
  Age: 1 Month
  Sex: Male

DRUGS (2)
  1. CABOMETYX [Suspect]
     Active Substance: CABOZANTINIB S-MALATE
     Indication: Glioma
     Route: 065
  2. CABOMETYX [Suspect]
     Active Substance: CABOZANTINIB S-MALATE
     Indication: Off label use

REACTIONS (6)
  - Pneumonitis [Unknown]
  - Malignant neoplasm progression [Unknown]
  - Periostitis [Unknown]
  - Therapy partial responder [Unknown]
  - Off label use [Unknown]
  - Off label use [Unknown]
